FAERS Safety Report 12994732 (Version 4)
Quarter: 2017Q1

REPORT INFORMATION
  Report Type: Spontaneous
  Country: GR (occurrence: GR)
  Receive Date: 20161202
  Receipt Date: 20170217
  Transmission Date: 20170428
  Serious: Yes (Other)
  Sender: FDA-Public Use
  Company Number: ALCN2016GR007941

PATIENT

DRUGS (6)
  1. NEVANAC [Suspect]
     Active Substance: NEPAFENAC
     Indication: PREOPERATIVE CARE
     Dosage: 1 DF, BID
     Route: 047
  2. MAXIDEX [Suspect]
     Active Substance: DEXAMETHASONE
     Indication: CYSTOID MACULAR OEDEMA
  3. EXOCIN [Suspect]
     Active Substance: OFLOXACIN
     Indication: CYSTOID MACULAR OEDEMA
  4. EXOCIN [Suspect]
     Active Substance: OFLOXACIN
     Indication: PREOPERATIVE CARE
     Dosage: 1 DF, QID
     Route: 065
  5. NEVANAC [Suspect]
     Active Substance: NEPAFENAC
     Indication: CYSTOID MACULAR OEDEMA
  6. MAXIDEX [Suspect]
     Active Substance: DEXAMETHASONE
     Indication: PREOPERATIVE CARE
     Dosage: 1 DF, QID
     Route: 047

REACTIONS (3)
  - Drug ineffective [Unknown]
  - Macular oedema [Unknown]
  - Visual acuity reduced [Unknown]
